FAERS Safety Report 7582988-3 (Version None)
Quarter: 2011Q2

REPORT INFORMATION
  Report Type: 
  Country: None (occurrence: None)
  Receive Date: 20110630
  Receipt Date: 20110622
  Transmission Date: 20111010
  Serious: Yes (Hospitalization)
  Sender: FDA-Public Use
  Company Number: FR-JNJFOC-20110610911

PATIENT
  Age: 56 Year
  Sex: Female
  Weight: 65 kg

DRUGS (8)
  1. DEXERYL [Concomitant]
     Indication: PRURIGO
     Route: 061
     Dates: start: 20110328
  2. IMOVANE [Concomitant]
     Indication: INSOMNIA
     Route: 048
     Dates: start: 20110527
  3. RITONAVIR [Suspect]
     Indication: HIV INFECTION
     Route: 065
     Dates: start: 20110429
  4. ACETAMINOPHEN [Concomitant]
     Indication: PARAESTHESIA
     Route: 048
     Dates: start: 20110527
  5. TMC114 [Suspect]
     Indication: HIV INFECTION
     Route: 048
     Dates: start: 20110429
  6. RALTEGRAVIR [Suspect]
     Indication: HIV INFECTION
     Route: 065
     Dates: start: 20110429
  7. COTRIM [Suspect]
     Indication: PROPHYLAXIS
     Route: 065
     Dates: start: 20110414, end: 20110620
  8. ATARAX [Concomitant]
     Indication: PRURIGO
     Route: 048
     Dates: start: 20110301

REACTIONS (1)
  - SKIN TOXICITY [None]
